FAERS Safety Report 19583490 (Version 1)
Quarter: 2021Q3

REPORT INFORMATION
  Report Type: Spontaneous
  Country: NL (occurrence: NL)
  Receive Date: 20210720
  Receipt Date: 20210720
  Transmission Date: 20211014
  Serious: Yes (Disabling)
  Sender: FDA-Public Use
  Company Number: NL-MYLANLABS-2021M1042489

PATIENT
  Sex: Female

DRUGS (4)
  1. ALENDRONINEZUUR MYLAN 10 MG, TABLETTEN [Suspect]
     Active Substance: ALENDRONIC ACID
     Indication: OSTEOPOROSIS
     Dosage: 10 MILLIGRAM, QD (1 DD 1)
     Dates: start: 20201207, end: 20210105
  2. CALCI CHEW [Concomitant]
     Dosage: 1 DOSAGE FORM, QD (1 X PER DAY)
     Dates: start: 20201120
  3. CYANOCOBALAMINE [Concomitant]
     Active Substance: CYANOCOBALAMIN
     Dosage: 1 DOSAGE FORM, QD (1X  PER DAY)
     Dates: start: 202008
  4. COLECALCIFEROL [Concomitant]
     Active Substance: CHOLECALCIFEROL
     Dosage: 10 GTT DROPS, QD (10 DROPS PER DAY)
     Dates: start: 202009

REACTIONS (6)
  - Feeling cold [Not Recovered/Not Resolved]
  - Myalgia [Not Recovered/Not Resolved]
  - Constipation [Not Recovered/Not Resolved]
  - Bone pain [Not Recovered/Not Resolved]
  - Joint swelling [Not Recovered/Not Resolved]
  - Dysphagia [Not Recovered/Not Resolved]
